FAERS Safety Report 7743764-1 (Version None)
Quarter: 2011Q3

REPORT INFORMATION
  Report Type: 
  Country: None (occurrence: None)
  Receive Date: 20110909
  Receipt Date: 20110909
  Transmission Date: 20111222
  Serious: Yes (Hospitalization, Disabling, Other)
  Sender: FDA-Public Use
  Company Number: None

PATIENT
  Age: 74 Year
  Sex: Female
  Weight: 53.5244 kg

DRUGS (1)
  1. LEVAQUIN [Suspect]
     Indication: PNEUMONIA
     Dosage: A DAY OR TWO BEFORE HOSPITAL, DURING HOSPITAL STAY, AND A FEW DAYS AFTER.

REACTIONS (3)
  - CONDITION AGGRAVATED [None]
  - PAIN [None]
  - PRE-EXISTING DISEASE [None]
